FAERS Safety Report 12847641 (Version 2)
Quarter: 2016Q4

REPORT INFORMATION
  Report Type: Spontaneous
  Country: US (occurrence: US)
  Receive Date: 20161014
  Receipt Date: 20161019
  Transmission Date: 20170207
  Serious: No
  Sender: FDA-Public Use
  Company Number: US-PFIZER INC-2016474627

PATIENT
  Sex: Female

DRUGS (1)
  1. VERAPAMIL HCL [Suspect]
     Active Substance: VERAPAMIL HYDROCHLORIDE
     Dosage: UNK

REACTIONS (3)
  - Drug intolerance [Unknown]
  - Supraventricular tachycardia [Unknown]
  - Heart rate increased [Unknown]
